FAERS Safety Report 18269244 (Version 1)
Quarter: 2020Q3

REPORT INFORMATION
  Report Type: Spontaneous
  Country: US (occurrence: US)
  Receive Date: 20200915
  Receipt Date: 20200915
  Transmission Date: 20201103
  Serious: Yes (Death)
  Sender: FDA-Public Use
  Company Number: US-BAYER-2020-191307

PATIENT
  Age: 61 Year
  Sex: Male

DRUGS (2)
  1. CLOPIDOGREL [Suspect]
     Active Substance: CLOPIDOGREL BISULFATE
  2. ACETYLSALICYLIC ACID [Suspect]
     Active Substance: ASPIRIN

REACTIONS (6)
  - Hydrocephalus [Fatal]
  - Posthaemorrhagic hydrocephalus [Fatal]
  - Labelled drug-drug interaction medication error [Fatal]
  - Intracranial tumour haemorrhage [Fatal]
  - Intraventricular haemorrhage [Fatal]
  - Vasogenic cerebral oedema [Fatal]
